FAERS Safety Report 17870310 (Version 1)
Quarter: 2020Q2

REPORT INFORMATION
  Report Type: Spontaneous
  Country: US (occurrence: US)
  Receive Date: 20200605
  Receipt Date: 20200605
  Transmission Date: 20200714
  Serious: Yes (Other)
  Sender: FDA-Public Use
  Company Number: None

PATIENT
  Age: 38 Year
  Sex: Male
  Weight: 95.3 kg

DRUGS (12)
  1. BACLOFEN. [Concomitant]
     Active Substance: BACLOFEN
  2. MELATONIN [Concomitant]
     Active Substance: MELATONIN
  3. NEURONTIN [Concomitant]
     Active Substance: GABAPENTIN
  4. SERZONE [Concomitant]
     Active Substance: NEFAZODONE HYDROCHLORIDE
  5. LAMICTAL [Concomitant]
     Active Substance: LAMOTRIGINE
  6. INBRIJA [Concomitant]
     Active Substance: LEVODOPA
  7. PROTONIX [Concomitant]
     Active Substance: PANTOPRAZOLE SODIUM
  8. RYTARY [Concomitant]
     Active Substance: CARBIDOPA\LEVODOPA
  9. NOURIANZ [Suspect]
     Active Substance: ISTRADEFYLLINE
     Indication: PARKINSON^S DISEASE
     Route: 048
     Dates: start: 202003, end: 202006
  10. VALIUM [Concomitant]
     Active Substance: DIAZEPAM
  11. FLOANSE [Concomitant]
  12. VIAGRA [Concomitant]
     Active Substance: SILDENAFIL CITRATE

REACTIONS (2)
  - Anxiety [None]
  - Impulse-control disorder [None]
